FAERS Safety Report 5731697-1 (Version None)
Quarter: 2008Q2

REPORT INFORMATION
  Report Type: 
  Country: None (occurrence: None)
  Receive Date: 20080508
  Receipt Date: 20080501
  Transmission Date: 20081010
  Serious: No
  Sender: FDA-Public Use
  Company Number: CA-ELI_LILLY_AND_COMPANY-CA200805000342

PATIENT
  Sex: Male

DRUGS (9)
  1. CIALIS [Suspect]
     Indication: ERECTILE DYSFUNCTION
     Dosage: 20 MG, AS NEEDED
     Route: 048
  2. METFORMIN HCL [Concomitant]
  3. ACTOS [Concomitant]
  4. COVERSUM [Concomitant]
     Indication: BLOOD PRESSURE
  5. ASPIRIN [Concomitant]
     Dosage: UNK, UNK
  6. SIMVASTATIN [Concomitant]
  7. FLOMAX [Concomitant]
  8. SYNTHROID [Concomitant]
  9. AMITRIPTLINE HCL [Concomitant]

REACTIONS (4)
  - DIZZINESS [None]
  - HYPOTENSION [None]
  - VISION BLURRED [None]
  - VISUAL DISTURBANCE [None]
